FAERS Safety Report 4414953-9 (Version None)
Quarter: 2004Q3

REPORT INFORMATION
  Report Type: 
  Country: None (occurrence: None)
  Receive Date: 20040803
  Receipt Date: 20040803
  Transmission Date: 20050211
  Serious: Yes (Hospitalization)
  Sender: FDA-Public Use
  Company Number: None

PATIENT
  Age: 12 Year
  Sex: Female
  Weight: 37 kg

DRUGS (1)
  1. METHOTREXATE [Suspect]
     Indication: ACUTE LYMPHOCYTIC LEUKAEMIA
     Dosage: 5 GM/M2 IVPB OVER 24HRS
     Route: 042
     Dates: start: 20040615

REACTIONS (4)
  - MUCOSAL INFLAMMATION [None]
  - NEUTROPENIA [None]
  - PYREXIA [None]
  - WEIGHT DECREASED [None]
